FAERS Safety Report 5287581-3 (Version None)
Quarter: 2007Q1

REPORT INFORMATION
  Report Type: 
  Country: None (occurrence: None)
  Receive Date: 20070126
  Receipt Date: 20060309
  Transmission Date: 20070707
  Serious: No
  Sender: FDA-Public Use
  Company Number: 2006CT001149

PATIENT
  Age: 74 Year
  Sex: Female
  Weight: 83.5 kg

DRUGS (6)
  1. VENTAVIS [Suspect]
     Indication: PULMONARY HYPERTENSION
     Dosage: 5 UG; 6XD; INH
     Route: 055
     Dates: start: 20060117, end: 20060309
  2. VITAMIN E [Concomitant]
  3. NEXIUM [Concomitant]
  4. ASPIRIN [Concomitant]
  5. PLAQUENIL [Concomitant]
  6. TRACLEER [Concomitant]

REACTIONS (2)
  - FATIGUE [None]
  - NO THERAPEUTIC RESPONSE [None]
